FAERS Safety Report 6978538-2 (Version None)
Quarter: 2010Q3

REPORT INFORMATION
  Report Type: 
  Country: None (occurrence: None)
  Receive Date: 20100913
  Receipt Date: 20100903
  Transmission Date: 20110219
  Serious: Yes (Hospitalization)
  Sender: FDA-Public Use
  Company Number: US-SHIRE-SPV1-2010-01561

PATIENT

DRUGS (1)
  1. INTUNIV [Suspect]
     Indication: PRODUCT USED FOR UNKNOWN INDICATION
     Dosage: UNK, UNKNOWN
     Route: 065
     Dates: start: 20100801

REACTIONS (3)
  - ADVERSE DRUG REACTION [None]
  - HYPERSOMNIA [None]
  - SOMNOLENCE [None]
